FAERS Safety Report 10055790 (Version 1)
Quarter: 2014Q2

REPORT INFORMATION
  Report Type: Spontaneous
  Country: US (occurrence: US)
  Receive Date: 20140403
  Receipt Date: 20140403
  Transmission Date: 20141212
  Serious: Yes (Hospitalization, Other)
  Sender: FDA-Public Use
  Company Number: US-BAYER-2014-049134

PATIENT
  Age: 54 Year
  Sex: Female
  Weight: 68.03 kg

DRUGS (6)
  1. YAZ [Suspect]
  2. HYDROCHLOROTHIAZIDE [Concomitant]
     Dosage: 25 MG, UNK
  3. SERTRALINE [Concomitant]
     Dosage: 50 MG, UNK
  4. LASIX [Concomitant]
  5. POTASSIUM CHLORATE [Concomitant]
  6. LEVAQUIN [Concomitant]

REACTIONS (3)
  - Cholecystitis [None]
  - Thrombophlebitis superficial [None]
  - Deep vein thrombosis [None]
